FAERS Safety Report 18413571 (Version 1)
Quarter: 2020Q4

REPORT INFORMATION
  Report Type: Spontaneous
  Country: IT (occurrence: IT)
  Receive Date: 20201022
  Receipt Date: 20201022
  Transmission Date: 20210114
  Serious: Yes (Hospitalization)
  Sender: FDA-Public Use
  Company Number: IT-ACCORD-205933

PATIENT
  Age: 86 Year
  Sex: Male

DRUGS (1)
  1. QUETIAPINE AHCL [Suspect]
     Active Substance: QUETIAPINE
     Indication: DEMENTIA ALZHEIMER^S TYPE
     Dosage: STRENGTH: 25 MG
     Route: 048
     Dates: start: 20201006, end: 20201008

REACTIONS (2)
  - Gait inability [Recovered/Resolved]
  - Off label use [Unknown]

NARRATIVE: CASE EVENT DATE: 20201008
